FAERS Safety Report 23544460 (Version 3)
Quarter: 2024Q3

REPORT INFORMATION
  Report Type: Report from Study
  Country: DE (occurrence: DE)
  Receive Date: 20240220
  Receipt Date: 20240820
  Transmission Date: 20241016
  Serious: Yes (Other)
  Sender: ROCHE
  Company Number: DE-ROCHE-3510291

PATIENT
  Age: 15 Day
  Sex: Female
  Weight: 3.175 kg

DRUGS (2)
  1. EVRYSDI [Suspect]
     Active Substance: RISDIPLAM
     Indication: Spinal muscular atrophy
     Dosage: ON 30/JAN/2024, SHE RECEIVED MOST RECENT DOSE OF RISDIPLAM.
     Route: 048
     Dates: start: 20240119
  2. CHOLECALCIFEROL [Concomitant]
     Active Substance: CHOLECALCIFEROL
     Dates: start: 20240124

REACTIONS (7)
  - Atrial septal defect [Recovered/Resolved]
  - Tachycardia [Recovered/Resolved]
  - Left ventricular dysfunction [Recovered/Resolved]
  - Right ventricular systolic pressure increased [Recovered/Resolved]
  - Cyanosis [Recovered/Resolved]
  - Thrombosis [Unknown]
  - Platelet count increased [Unknown]

NARRATIVE: CASE EVENT DATE: 20240124
